FAERS Safety Report 8291236-0 (Version None)
Quarter: 2012Q2

REPORT INFORMATION
  Report Type: 
  Country: None (occurrence: None)
  Receive Date: 20120417
  Receipt Date: 20120412
  Transmission Date: 20120825
  Serious: Yes (Life-Threatening, Hospitalization)
  Sender: FDA-Public Use
  Company Number: IT-BRISTOL-MYERS SQUIBB COMPANY-16477473

PATIENT
  Age: 60 Year
  Sex: Male

DRUGS (3)
  1. ATENOLOL [Concomitant]
  2. IPILIMUMAB [Suspect]
     Indication: MALIGNANT MELANOMA
     Dosage: VIAL NO:350663,350664,350665,312-309MG INTERRUPT ON 15MAR12
     Route: 042
     Dates: start: 20120202
  3. INDAPAMIDE [Concomitant]

REACTIONS (2)
  - UPPER RESPIRATORY TRACT INFECTION [None]
  - SEPSIS [None]
